FAERS Safety Report 25859022 (Version 1)
Quarter: 2025Q3

REPORT INFORMATION
  Report Type: Spontaneous
  Country: US (occurrence: US)
  Receive Date: 20250929
  Receipt Date: 20250929
  Transmission Date: 20251021
  Serious: Yes (Disabling, Other)
  Sender: BAYER HEALTHCARE LLC
  Company Number: US-BAYER-2025A127592

PATIENT
  Sex: Male

DRUGS (2)
  1. TINACTIN [Suspect]
     Active Substance: TOLNAFTATE
  2. LOTRIMIN ANTIFUNGAL (MICONAZOLE NITRATE) [Suspect]
     Active Substance: MICONAZOLE NITRATE

REACTIONS (10)
  - Mesothelioma [None]
  - Neoplasm malignant [None]
  - Disability [None]
  - Exposure to chemical pollution [None]
  - Pain [None]
  - Emotional distress [None]
  - Physical disability [None]
  - Deformity [None]
  - Anxiety [None]
  - Anhedonia [None]
